FAERS Safety Report 15465479 (Version 1)
Quarter: 2018Q4

REPORT INFORMATION
  Report Type: Spontaneous
  Country: US (occurrence: US)
  Receive Date: 20181004
  Receipt Date: 20181004
  Transmission Date: 20190204
  Serious: No
  Sender: FDA-Public Use
  Company Number: US-MAYNE PHARMA-2017MYN002380

PATIENT

DRUGS (3)
  1. FABIOR [Suspect]
     Active Substance: TAZAROTENE
     Indication: SKIN REACTION
     Dosage: APPLY TO CHEST AND BACK AT BEDTIME
     Route: 061
     Dates: start: 20171211, end: 20171213
  2. CITALOPRAM [Concomitant]
     Active Substance: CITALOPRAM HYDROBROMIDE
     Dosage: UNK
     Dates: start: 2016
  3. METOPROLOL. [Concomitant]
     Active Substance: METOPROLOL
     Dosage: UNK
     Dates: start: 201710

REACTIONS (4)
  - Application site pain [Not Recovered/Not Resolved]
  - Application site erythema [Not Recovered/Not Resolved]
  - Product use in unapproved indication [Unknown]
  - Application site dryness [Not Recovered/Not Resolved]

NARRATIVE: CASE EVENT DATE: 201712
